FAERS Safety Report 20296844 (Version 1)
Quarter: 2022Q1

REPORT INFORMATION
  Report Type: Spontaneous
  Country: US (occurrence: None)
  Receive Date: 20220105
  Receipt Date: 20220105
  Transmission Date: 20220423
  Serious: No
  Sender: FDA-Public Use
  Company Number: US-ROCHE-2887976

PATIENT
  Sex: Male

DRUGS (1)
  1. HEMLIBRA [Suspect]
     Active Substance: EMICIZUMAB-KXWH
     Indication: Factor VIII deficiency
     Dosage: 60 MG/0.4 ML.?ON 05/AUG/2021, HE RECEIVED SUBSEQUENT THERAPY WITH SUBCUTANEOUS EMICIZUMAB.
     Route: 058
     Dates: start: 20210708

REACTIONS (1)
  - Haemorrhage [Unknown]
